FAERS Safety Report 12595723 (Version 1)
Quarter: 2016Q3

REPORT INFORMATION
  Report Type: Spontaneous
  Country: US (occurrence: US)
  Receive Date: 20160727
  Receipt Date: 20160727
  Transmission Date: 20161109
  Serious: No
  Sender: FDA-Public Use
  Company Number: US-GLENMARK PHARMACEUTICALS INC, USA.-2016GMK022963

PATIENT

DRUGS (5)
  1. PROPAFENONE. [Concomitant]
     Active Substance: PROPAFENONE
     Indication: ATRIAL FIBRILLATION
     Dosage: 150 MG, BID
     Route: 048
     Dates: start: 2013
  2. MUPIROCIN. [Suspect]
     Active Substance: MUPIROCIN
     Indication: WOUND
     Dosage: ONE APPLICATION TWICE DAILY
     Route: 061
     Dates: start: 20160510, end: 20160513
  3. POLYSPORIN TRIPLE ANTIBIOTIC [Concomitant]
     Indication: SKIN ABRASION
  4. MUPIROCIN. [Suspect]
     Active Substance: MUPIROCIN
     Indication: SKIN ABRASION
  5. POLYSPORIN TRIPLE ANTIBIOTIC [Concomitant]
     Indication: WOUND
     Dosage: UNK
     Route: 061

REACTIONS (4)
  - Off label use [Unknown]
  - Application site reaction [Recovered/Resolved]
  - Application site irritation [Recovered/Resolved]
  - Application site erythema [Recovered/Resolved]

NARRATIVE: CASE EVENT DATE: 20160510
